FAERS Safety Report 21705092 (Version 1)
Quarter: 2022Q4

REPORT INFORMATION
  Report Type: Spontaneous
  Country: US (occurrence: None)
  Receive Date: 20221208
  Receipt Date: 20221208
  Transmission Date: 20230112
  Serious: Yes (Hospitalization)
  Sender: FDA-Public Use
  Company Number: None

PATIENT
  Age: 63 Year
  Sex: Female
  Weight: 127.96 kg

DRUGS (3)
  1. TAXOTERE [Suspect]
     Active Substance: DOCETAXEL
     Dates: end: 20221116
  2. PERTUZUMAB [Suspect]
     Active Substance: PERTUZUMAB
     Dates: end: 20221116
  3. HERCEPTIN [Suspect]
     Active Substance: TRASTUZUMAB
     Dates: end: 20221116

REACTIONS (6)
  - Acute kidney injury [None]
  - Weight decreased [None]
  - Decreased appetite [None]
  - Taste disorder [None]
  - Nausea [None]
  - Diarrhoea [None]

NARRATIVE: CASE EVENT DATE: 20221206
